FAERS Safety Report 9240441 (Version 1)
Quarter: 2013Q2

REPORT INFORMATION
  Report Type: Spontaneous
  Country: US (occurrence: None)
  Receive Date: 20130417
  Receipt Date: 20130417
  Transmission Date: 20140414
  Serious: Yes (Other)
  Sender: FDA-Public Use
  Company Number: AUR-APL-2013-02957

PATIENT
  Age: 4 Year
  Sex: Female

DRUGS (5)
  1. VALPROATE SEMISODIUM (VALPROATE SEMISODIUM) [Suspect]
     Indication: COMPLEX PARTIAL SEIZURES
  2. LEVETIRACETAM (LEVETIRACETAM) [Suspect]
     Indication: COMPLEX PARTIAL SEIZURES
  3. CARBAMAZEPINE (CARBAMAZEPINE) [Suspect]
     Indication: COMPLEX PARTIAL SEIZURES
  4. LACOSAMIDE (LACOSAMIDE) [Suspect]
     Indication: COMPLEX PARTIAL SEIZURES
     Dosage: 50 MG (25 MG, 2 IN 1 D), UNKNOWN
  5. OXCARBAZEPINE (OXCARBAZEPINE) TABLET, 300MG [Suspect]
     Indication: COMPLEX PARTIAL SEIZURES

REACTIONS (14)
  - Decreased appetite [None]
  - Dizziness [None]
  - Gait disturbance [None]
  - Somnolence [None]
  - Leukopenia [None]
  - Thrombocytopenia [None]
  - Clonus [None]
  - Toxicity to various agents [None]
  - Depressed level of consciousness [None]
  - Hepatotoxicity [None]
  - Pancreatitis [None]
  - Hyperammonaemia [None]
  - Haematology test abnormal [None]
  - Drug level increased [None]
